FAERS Safety Report 14078435 (Version 1)
Quarter: 2017Q4

REPORT INFORMATION
  Report Type: Spontaneous
  Country: US (occurrence: US)
  Receive Date: 20171011
  Receipt Date: 20171011
  Transmission Date: 20180321
  Serious: Yes (Death)
  Sender: FDA-Public Use
  Company Number: None

PATIENT
  Age: 61 Year
  Sex: Male
  Weight: 107.5 kg

DRUGS (1)
  1. KEYTRUDA [Suspect]
     Active Substance: PEMBROLIZUMAB
     Indication: KAPOSI^S SARCOMA

REACTIONS (11)
  - Acute kidney injury [None]
  - Respiratory failure [None]
  - Acute hepatic failure [None]
  - Fluid retention [None]
  - Hypotension [None]
  - Pleural effusion [None]
  - Multiple organ dysfunction syndrome [None]
  - Generalised oedema [None]
  - Cardiac failure congestive [None]
  - Thrombocytopenia [None]
  - Hepatitis [None]

NARRATIVE: CASE EVENT DATE: 20170908
